FAERS Safety Report 18581580 (Version 11)
Quarter: 2025Q1

REPORT INFORMATION
  Report Type: Report from Study
  Country: US (occurrence: US)
  Receive Date: 20201204
  Receipt Date: 20250107
  Transmission Date: 20250408
  Serious: Yes (Hospitalization, Other)
  Sender: TAKEDA
  Company Number: US-TAKEDA-2020TUS052800

PATIENT
  Age: 5 Year
  Sex: Male
  Weight: 11 kg

DRUGS (11)
  1. TEDUGLUTIDE [Suspect]
     Active Substance: TEDUGLUTIDE
     Indication: Short-bowel syndrome
     Dosage: UNK, QD
     Dates: start: 20200902
  2. TEDUGLUTIDE [Suspect]
     Active Substance: TEDUGLUTIDE
     Dosage: 0.056 MILLILITER, QD
     Dates: start: 20200903
  3. TEDUGLUTIDE [Suspect]
     Active Substance: TEDUGLUTIDE
     Dosage: 0.56 MILLIGRAM, QD
  4. TEDUGLUTIDE [Suspect]
     Active Substance: TEDUGLUTIDE
     Dosage: 0.064 MILLILITER, QD
  5. TEDUGLUTIDE [Suspect]
     Active Substance: TEDUGLUTIDE
     Dosage: 0.7 MILLIGRAM, QD
  6. TEDUGLUTIDE [Suspect]
     Active Substance: TEDUGLUTIDE
     Dosage: 0.7 MILLIGRAM, QD
  7. TEDUGLUTIDE [Suspect]
     Active Substance: TEDUGLUTIDE
     Dosage: 0.7 MILLIGRAM, QD
  8. POWDERED TALC [Concomitant]
  9. SMOFLIPID [Concomitant]
     Active Substance: FISH OIL\MEDIUM-CHAIN TRIGLYCERIDES\OLIVE OIL\SOYBEAN OIL
  10. TPN [Concomitant]
     Active Substance: AMINO ACIDS\DEXTROSE\ELECTROLYTES NOS\SOYBEAN OIL
  11. SULFASALAZINE [Concomitant]
     Active Substance: SULFASALAZINE

REACTIONS (10)
  - Respiratory syncytial virus infection [Recovered/Resolved with Sequelae]
  - Lyme disease [Unknown]
  - Vascular device infection [Unknown]
  - Weight increased [Unknown]
  - Accidental overdose [Unknown]
  - Product dose omission issue [Unknown]
  - Metabolic acidosis [Recovered/Resolved]
  - Pyrexia [Recovered/Resolved]
  - Culture negative [Unknown]
  - Vomiting [Unknown]

NARRATIVE: CASE EVENT DATE: 20240621
